FAERS Safety Report 16669398 (Version 1)
Quarter: 2019Q3

REPORT INFORMATION
  Report Type: Spontaneous
  Country: DE (occurrence: DE)
  Receive Date: 20190805
  Receipt Date: 20190805
  Transmission Date: 20191004
  Serious: Yes (Other)
  Sender: FDA-Public Use
  Company Number: DE-AMGEN-DEUSP2019123520

PATIENT

DRUGS (1)
  1. EVOLOCUMAB [Suspect]
     Active Substance: EVOLOCUMAB
     Indication: TYPE IIA HYPERLIPIDAEMIA
     Dosage: UNK
     Route: 065

REACTIONS (13)
  - Memory impairment [Unknown]
  - Acute myocardial infarction [Unknown]
  - Restlessness [Unknown]
  - Percutaneous coronary intervention [Unknown]
  - Myalgia [Unknown]
  - Depression [Unknown]
  - Nausea [Unknown]
  - Arthralgia [Unknown]
  - Fatigue [Unknown]
  - Cognitive disorder [Unknown]
  - Dermatitis [Unknown]
  - Alopecia [Unknown]
  - Dizziness [Unknown]
